FAERS Safety Report 20696757 (Version 1)
Quarter: 2022Q2

REPORT INFORMATION
  Report Type: Spontaneous
  Country: US (occurrence: US)
  Receive Date: 20220411
  Receipt Date: 20220411
  Transmission Date: 20220721
  Serious: Yes (Other)
  Sender: FDA-Public Use
  Company Number: US-TASMAN PHARMA, INC.-2022TSM00054

PATIENT
  Sex: Female

DRUGS (5)
  1. CLOZAPINE [Suspect]
     Active Substance: CLOZAPINE
     Indication: Psychotic symptom
     Dosage: 150 MG, 1X/DAY; MORNING
     Route: 065
  2. CLOZAPINE [Suspect]
     Active Substance: CLOZAPINE
     Dosage: 250 MG, 1X/DAY; BEDTIME
     Route: 065
  3. CLOZAPINE [Suspect]
     Active Substance: CLOZAPINE
     Dosage: 125 MG, 1X/DAY
     Route: 065
  4. CINACALCET [Suspect]
     Active Substance: CINACALCET
     Indication: Blood calcium increased
     Dosage: 30 MG, 3X/WEEK
     Route: 048
  5. CINACALCET [Suspect]
     Active Substance: CINACALCET
     Dosage: 30 MG, 1X/DAY
     Route: 048

REACTIONS (2)
  - Torticollis [Recovered/Resolved]
  - Drug interaction [Recovered/Resolved]
